FAERS Safety Report 6525574-6 (Version None)
Quarter: 2010Q1

REPORT INFORMATION
  Report Type: 
  Country: None (occurrence: None)
  Receive Date: 20100104
  Receipt Date: 20091228
  Transmission Date: 20100710
  Serious: Yes (Hospitalization, Other)
  Sender: FDA-Public Use
  Company Number: BR-PFIZER INC-2009314776

PATIENT
  Age: 62 Year
  Sex: Female
  Weight: 60 kg

DRUGS (5)
  1. CHAMPIX [Suspect]
     Indication: SMOKING CESSATION THERAPY
     Dosage: 0.5 MG, 2X/DAY
     Route: 048
     Dates: start: 20091214, end: 20091218
  2. DIOVAN [Concomitant]
     Dosage: UNK
  3. LASIX [Concomitant]
  4. RIVOTRIL [Concomitant]
     Dosage: UNK
  5. PURAN T4 [Concomitant]
     Dosage: UNK

REACTIONS (8)
  - BRONCHOSPASM [None]
  - DEHYDRATION [None]
  - DYSGEUSIA [None]
  - DYSPEPSIA [None]
  - DYSPNOEA [None]
  - HYPERHIDROSIS [None]
  - SYNCOPE [None]
  - VOMITING [None]
